FAERS Safety Report 9125604 (Version 1)
Quarter: 2013Q1

REPORT INFORMATION
  Report Type: Spontaneous
  Country: SE (occurrence: SE)
  Receive Date: 20130121
  Receipt Date: 20130121
  Transmission Date: 20140127
  Serious: Yes (Other)
  Sender: FDA-Public Use
  Company Number: SE-GLAXOSMITHKLINE-B0861024A

PATIENT
  Sex: Male

DRUGS (6)
  1. SEROXAT [Suspect]
     Indication: ANXIETY
     Dates: start: 20121015, end: 20121026
  2. RIMACTANE [Suspect]
     Indication: STAPHYLOCOCCAL INFECTION
     Dates: start: 20121015, end: 20121026
  3. ALTARGO [Concomitant]
  4. FUCIDIN [Concomitant]
  5. KAVEPENIN [Concomitant]
  6. BACTROBAN [Concomitant]

REACTIONS (2)
  - Drug interaction [Recovered/Resolved]
  - Drug effect decreased [Recovered/Resolved]
